FAERS Safety Report 19792841 (Version 1)
Quarter: 2021Q3

REPORT INFORMATION
  Report Type: Spontaneous
  Country: FR (occurrence: FR)
  Receive Date: 20210906
  Receipt Date: 20210906
  Transmission Date: 20211014
  Serious: Yes (Other)
  Sender: FDA-Public Use
  Company Number: FR-PFIZER INC-202101094517

PATIENT
  Age: 48 Year
  Sex: Male
  Weight: 57 kg

DRUGS (2)
  1. XELJANZ [Suspect]
     Active Substance: TOFACITINIB CITRATE
     Indication: COLITIS
     Dosage: 10 MG, 2X/DAY
     Route: 048
     Dates: start: 20200627, end: 202011
  2. XELJANZ [Suspect]
     Active Substance: TOFACITINIB CITRATE
     Dosage: 5 MG, 2X/DAY
     Route: 048
     Dates: start: 202011, end: 202108

REACTIONS (1)
  - Rectal cancer [Recovered/Resolved with Sequelae]

NARRATIVE: CASE EVENT DATE: 20210806
